FAERS Safety Report 12420159 (Version 1)
Quarter: 2016Q2

REPORT INFORMATION
  Report Type: Report from Study
  Country: DE (occurrence: DE)
  Receive Date: 20160531
  Receipt Date: 20160531
  Transmission Date: 20160815
  Serious: Yes (Death)
  Sender: FDA-Public Use
  Company Number: DE-ABBVIE-16P-062-1638764-00

PATIENT
  Age: 64 Year
  Sex: Male

DRUGS (2)
  1. MADOPAR [Concomitant]
     Active Substance: BENSERAZIDE HYDROCHLORIDE\LEVODOPA
     Indication: PRODUCT USED FOR UNKNOWN INDICATION
  2. DUODOPA [Suspect]
     Active Substance: CARBIDOPA\LEVODOPA
     Indication: PARKINSON^S DISEASE
     Dosage: MD7.3ML, CRD 3.2ML/H, ED 0.5ML
     Route: 050
     Dates: start: 20130826, end: 20160524

REACTIONS (1)
  - Death [Fatal]

NARRATIVE: CASE EVENT DATE: 20160524
